FAERS Safety Report 9750175 (Version 1)
Quarter: 2013Q4

REPORT INFORMATION
  Report Type: Spontaneous
  Country: DE (occurrence: DE)
  Receive Date: 20131212
  Receipt Date: 20131212
  Transmission Date: 20140711
  Serious: Yes (Disabling)
  Sender: FDA-Public Use
  Company Number: GXKR2013DE003797

PATIENT
  Age: 54 Year
  Sex: Female

DRUGS (5)
  1. TRIAMHEXAL [Suspect]
     Dosage: UNK, ONCE/SINGLE
  2. PROTOPIC [Concomitant]
  3. MOMEGALEN [Concomitant]
  4. IBUFLAM [Concomitant]
  5. TANNOLACT [Concomitant]

REACTIONS (9)
  - Erythema [Recovered/Resolved]
  - Swelling face [Recovered/Resolved]
  - Feeling hot [Unknown]
  - Blood pressure increased [Recovered/Resolved]
  - Blood pressure fluctuation [Recovered/Resolved]
  - Palpitations [Unknown]
  - Restlessness [Unknown]
  - Rhinorrhoea [Unknown]
  - Sneezing [Unknown]
